FAERS Safety Report 20893273 (Version 1)
Quarter: 2022Q2

REPORT INFORMATION
  Report Type: Report from Study
  Country: US (occurrence: US)
  Receive Date: 20220531
  Receipt Date: 20220531
  Transmission Date: 20220721
  Serious: Yes (Hospitalization, Other)
  Sender: FDA-Public Use
  Company Number: US-SANOFI-01107011

PATIENT
  Age: 66 Year
  Sex: Female

DRUGS (3)
  1. TERIFLUNOMIDE [Suspect]
     Active Substance: TERIFLUNOMIDE
     Indication: Multiple sclerosis
     Dosage: 14 MG, QD
     Route: 048
     Dates: start: 20210525
  2. TERIFLUNOMIDE [Suspect]
     Active Substance: TERIFLUNOMIDE
     Dosage: 14 MG, BID
     Route: 048
  3. ROSASTIN [Concomitant]

REACTIONS (9)
  - Paralysis [Recovering/Resolving]
  - Urinary tract infection [Unknown]
  - Escherichia sepsis [Unknown]
  - White blood cells urine positive [Unknown]
  - Multiple sclerosis relapse [Unknown]
  - Sinusitis [Unknown]
  - Impaired driving ability [Unknown]
  - Nausea [Unknown]
  - Product use issue [Unknown]

NARRATIVE: CASE EVENT DATE: 20210501
